FAERS Safety Report 15251068 (Version 1)
Quarter: 2018Q3

REPORT INFORMATION
  Report Type: Spontaneous
  Country: US (occurrence: US)
  Receive Date: 20180807
  Receipt Date: 20180807
  Transmission Date: 20181010
  Serious: Yes (Hospitalization, Other)
  Sender: FDA-Public Use
  Company Number: US-EPIC PHARMA LLC-2018EPC00359

PATIENT
  Age: 33 Year
  Sex: Male

DRUGS (2)
  1. GABAPENTIN. [Suspect]
     Active Substance: GABAPENTIN
     Dosage: 7 TABLETS, ONCE
     Route: 065
  2. HEROIN [Suspect]
     Active Substance: DIAMORPHINE
     Route: 051

REACTIONS (5)
  - Bradypnoea [Recovered/Resolved]
  - Drug interaction [Unknown]
  - Pulmonary oedema [Unknown]
  - Depressed level of consciousness [Unknown]
  - Hypoxia [Recovered/Resolved]
